FAERS Safety Report 19845106 (Version 1)
Quarter: 2021Q3

REPORT INFORMATION
  Report Type: Spontaneous
  Country: CA (occurrence: CA)
  Receive Date: 20210917
  Receipt Date: 20210917
  Transmission Date: 20211014
  Serious: Yes (Congenital Anomaly, Other)
  Sender: FDA-Public Use
  Company Number: CA-SUN PHARMACEUTICAL INDUSTRIES LTD-2021R1-311490

PATIENT

DRUGS (1)
  1. INDOMETHACIN. [Suspect]
     Active Substance: INDOMETHACIN
     Indication: PATENT DUCTUS ARTERIOSUS
     Dosage: UNK
     Route: 064

REACTIONS (4)
  - Cardiovascular disorder [Unknown]
  - Ebstein^s anomaly [Unknown]
  - Foetal exposure during pregnancy [Unknown]
  - Ductus arteriosus premature closure [Unknown]
